FAERS Safety Report 12286865 (Version 2)
Quarter: 2016Q2

REPORT INFORMATION
  Report Type: Spontaneous
  Country: US (occurrence: US)
  Receive Date: 20160420
  Receipt Date: 20160428
  Transmission Date: 20160815
  Serious: Yes (Other)
  Sender: FDA-Public Use
  Company Number: US-CELGENEUS-USA-2016044159

PATIENT
  Age: 60 Year
  Sex: Male
  Weight: 111.23 kg

DRUGS (2)
  1. THALOMID [Suspect]
     Active Substance: THALIDOMIDE
     Route: 048
     Dates: start: 20160322
  2. THALOMID [Suspect]
     Active Substance: THALIDOMIDE
     Indication: DERMATITIS CONTACT
     Route: 048
     Dates: start: 201509

REACTIONS (3)
  - Bronchitis [Recovering/Resolving]
  - Joint stiffness [Recovering/Resolving]
  - Fatigue [Unknown]

NARRATIVE: CASE EVENT DATE: 201601
